FAERS Safety Report 9698959 (Version 1)
Quarter: 2013Q4

REPORT INFORMATION
  Report Type: Spontaneous
  Country: DE (occurrence: DE)
  Receive Date: 20131120
  Receipt Date: 20131120
  Transmission Date: 20140711
  Serious: Yes (Death)
  Sender: FDA-Public Use
  Company Number: DE-PFIZER INC-2013327493

PATIENT
  Sex: 0

DRUGS (3)
  1. LYRICA [Suspect]
     Indication: NEURALGIA
     Dosage: 300 MG, 2X/DAY
  2. LYRICA [Suspect]
     Dosage: MORE THAN 600 MG DAILY IN THE LAST 4 YEARS
  3. MORPHINE [Concomitant]

REACTIONS (2)
  - Death [Fatal]
  - Intentional overdose [Unknown]
